FAERS Safety Report 25480059 (Version 2)
Quarter: 2025Q3

REPORT INFORMATION
  Report Type: Spontaneous
  Country: JP (occurrence: JP)
  Receive Date: 20250625
  Receipt Date: 20250707
  Transmission Date: 20251021
  Serious: Yes (Hospitalization, Disabling)
  Sender: ELI LILLY AND COMPANY
  Company Number: JP-ELI_LILLY_AND_COMPANY-JP202506015615

PATIENT
  Age: 43 Year
  Sex: Male

DRUGS (4)
  1. EMGALITY [Suspect]
     Active Substance: GALCANEZUMAB-GNLM
     Indication: Migraine
     Route: 058
     Dates: start: 20240917
  2. EMGALITY [Suspect]
     Active Substance: GALCANEZUMAB-GNLM
     Dosage: 120 MG, MONTHLY (1/M)
     Route: 058
     Dates: end: 20250220
  3. PROPRANOLOL HYDROCHLORIDE [Concomitant]
     Active Substance: PROPRANOLOL HYDROCHLORIDE
     Indication: Migraine
     Dosage: 20 MG, TID
     Route: 048
     Dates: start: 20240610, end: 20250312
  4. AMITRIPTYLINE HYDROCHLORIDE [Concomitant]
     Active Substance: AMITRIPTYLINE HYDROCHLORIDE
     Indication: Migraine
     Dosage: 10 MG, DAILY
     Route: 048
     Dates: start: 20241118, end: 20250311

REACTIONS (2)
  - Brain stem infarction [Recovered/Resolved with Sequelae]
  - Vertebrobasilar artery dissection [Recovered/Resolved with Sequelae]

NARRATIVE: CASE EVENT DATE: 20250306
